FAERS Safety Report 8189544-7 (Version None)
Quarter: 2012Q1

REPORT INFORMATION
  Report Type: 
  Country: None (occurrence: None)
  Receive Date: 20120307
  Receipt Date: 20120305
  Transmission Date: 20120608
  Serious: Yes (Other)
  Sender: FDA-Public Use
  Company Number: BR-B.I. PHARMACEUTICALS,INC./RIDGEFIELD-2012-BR-00208BR

PATIENT
  Age: 78 Year
  Sex: Male

DRUGS (4)
  1. ACETYLSALICYLIC ACID SRT [Concomitant]
  2. SUSTRATE [Concomitant]
  3. MICARDIS [Suspect]
     Indication: HYPERTENSION
     Dosage: 160 MG
     Dates: start: 20080101, end: 20120101
  4. METOPROLOL SUCCINATE [Concomitant]

REACTIONS (1)
  - INFARCTION [None]
